FAERS Safety Report 5609690-9 (Version None)
Quarter: 2008Q1

REPORT INFORMATION
  Report Type: 
  Country: None (occurrence: None)
  Receive Date: 20080131
  Receipt Date: 20080122
  Transmission Date: 20080703
  Serious: Yes (Other)
  Sender: FDA-Public Use
  Company Number: US-PFIZER INC-2008007130

PATIENT
  Age: 48 Year
  Sex: Male

DRUGS (2)
  1. DEPO-PROVERA SUSPENSION/INJ [Suspect]
     Indication: EXCESSIVE MASTURBATION
     Route: 030
     Dates: start: 20070101, end: 20070101
  2. DEPO-PROVERA SUSPENSION/INJ [Suspect]
     Route: 030
     Dates: start: 20070101, end: 20070101

REACTIONS (2)
  - DRUG EFFECT DECREASED [None]
  - HAEMATURIA [None]
